APPROVED DRUG PRODUCT: DESIPRAMINE HYDROCHLORIDE
Active Ingredient: DESIPRAMINE HYDROCHLORIDE
Strength: 150MG
Dosage Form/Route: TABLET;ORAL
Application: A209785 | Product #006 | TE Code: AB
Applicant: ALEMBIC PHARMACEUTICALS LTD
Approved: Jul 7, 2021 | RLD: No | RS: No | Type: RX